FAERS Safety Report 20151031 (Version 1)
Quarter: 2021Q4

REPORT INFORMATION
  Report Type: Report from Study
  Country: US (occurrence: US)
  Receive Date: 20211206
  Receipt Date: 20211206
  Transmission Date: 20220303
  Serious: Yes (Other)
  Sender: FDA-Public Use
  Company Number: US-GILEAD-2021-0557298

PATIENT
  Age: 73 Year
  Sex: Female

DRUGS (1)
  1. AZTREONAM LYSINE [Suspect]
     Active Substance: AZTREONAM LYSINE
     Indication: Bronchiectasis
     Dosage: UNK
     Route: 055

REACTIONS (7)
  - Rheumatoid arthritis [Not Recovered/Not Resolved]
  - Anxiety [Unknown]
  - Pain [Unknown]
  - Off label use [Unknown]
  - Off label use [Not Recovered/Not Resolved]
  - Product use issue [Unknown]
  - Product packaging difficult to open [Unknown]
